FAERS Safety Report 8658019 (Version 3)
Quarter: 2014Q1

REPORT INFORMATION
  Report Type: Spontaneous
  Country: US (occurrence: US)
  Receive Date: 20120710
  Receipt Date: 20140206
  Transmission Date: 20141002
  Serious: Yes (Hospitalization)
  Sender: FDA-Public Use
  Company Number: US-BAYER-2012-068127

PATIENT
  Age: 40 Year
  Sex: Female
  Weight: 65.76 kg

DRUGS (13)
  1. YAZ [Suspect]
     Dosage: UNK
     Dates: start: 201011
  2. GIANVI [Suspect]
     Dosage: UNK
     Dates: start: 201011
  3. YASMIN [Suspect]
     Dosage: UNK
     Dates: start: 201011
  4. ADVAIR [Concomitant]
     Dosage: 250/500 MILLIGRAMS TWICE A DAY
  5. ALBUTEROL [Concomitant]
  6. PREDNISONE [Concomitant]
  7. CIPRO [Concomitant]
  8. OXYCODONE/APAP [Concomitant]
  9. IBUPROFEN [Concomitant]
     Dosage: 800 MG, UNK
  10. METRONIDAZOLE [Concomitant]
     Dosage: 0.7 UNK, UNK
     Route: 067
  11. ATROVENT [Concomitant]
  12. PERCOCET [Concomitant]
     Dosage: UNK
  13. IRON [Concomitant]

REACTIONS (5)
  - Pulmonary embolism [Recovered/Resolved]
  - Pain [Recovered/Resolved]
  - Pain [None]
  - Fear [None]
  - Injury [Recovered/Resolved]
